FAERS Safety Report 5883738-9 (Version None)
Quarter: 2008Q3

REPORT INFORMATION
  Report Type: 
  Country: None (occurrence: None)
  Receive Date: 20080911
  Receipt Date: 20080905
  Transmission Date: 20090109
  Serious: Yes (Other)
  Sender: FDA-Public Use
  Company Number: 2008AL003440

PATIENT
  Age: 45 Year
  Sex: Female
  Weight: 92.0802 kg

DRUGS (6)
  1. DIGOXIN [Suspect]
     Indication: CARDIAC FAILURE CONGESTIVE
     Dosage: 0.25MG, DAILY, PO
     Route: 048
     Dates: start: 20080301, end: 20080530
  2. LASIX [Concomitant]
  3. INDERAL [Concomitant]
  4. PROPRANOLOL [Concomitant]
  5. MAXAIR [Concomitant]
  6. NASACORT [Concomitant]

REACTIONS (4)
  - CARDIOACTIVE DRUG LEVEL DECREASED [None]
  - DYSPNOEA [None]
  - HEART RATE INCREASED [None]
  - PALPITATIONS [None]
